FAERS Safety Report 23440542 (Version 5)
Quarter: 2024Q2

REPORT INFORMATION
  Report Type: Report from Study
  Country: US (occurrence: US)
  Receive Date: 20240125
  Receipt Date: 20240605
  Transmission Date: 20240716
  Serious: No
  Sender: FDA-Public Use
  Company Number: US-DECIPHERA PHARMACEUTICALS LLC-2024US000070

PATIENT
  Age: 62 Year
  Sex: Female

DRUGS (7)
  1. QINLOCK [Suspect]
     Active Substance: RIPRETINIB
     Indication: Gastrointestinal stromal tumour
     Dosage: 150 MILLIGRAM, QD
     Route: 048
     Dates: start: 20231010
  2. QINLOCK [Suspect]
     Active Substance: RIPRETINIB
     Dosage: 150 MILLIGRAM, QD
     Route: 048
  3. QINLOCK [Suspect]
     Active Substance: RIPRETINIB
     Dosage: UNK, DOSE REDUCED FROM BID
     Dates: start: 202401
  4. QINLOCK [Suspect]
     Active Substance: RIPRETINIB
     Dosage: 150 MILLIGRAM, BID, ON MONDAYS, WEDNESDAYS AND FRIDAYS
     Route: 048
     Dates: start: 202312, end: 202405
  5. QINLOCK [Suspect]
     Active Substance: RIPRETINIB
     Dosage: 150 MILLIGRAM, QD, ON ALL OTHER DAYS (EXCEPT MONDAYS, WEDNESDAYS AND FRIDAYS)
     Route: 048
     Dates: end: 202405
  6. QINLOCK [Suspect]
     Active Substance: RIPRETINIB
     Dosage: 150 MILLIGRAM, BID, ON MONDAYS, WEDNESDAYS AND FRIDAYS
     Route: 048
     Dates: start: 202405
  7. QINLOCK [Suspect]
     Active Substance: RIPRETINIB
     Dosage: 150 MILLIGRAM, QD, ON ALL OTHER DAYS (EXCEPT MONDAYS, WEDNESDAYS AND FRIDAYS)
     Route: 048
     Dates: start: 202405

REACTIONS (6)
  - Pain in extremity [Recovered/Resolved]
  - Hyperkeratosis [Not Recovered/Not Resolved]
  - Nausea [Unknown]
  - Diarrhoea [Recovering/Resolving]
  - Extra dose administered [Unknown]
  - Inappropriate schedule of product administration [Unknown]

NARRATIVE: CASE EVENT DATE: 20231201
